FAERS Safety Report 25976871 (Version 1)
Quarter: 2025Q4

REPORT INFORMATION
  Report Type: Report from Study
  Country: EU (occurrence: EU)
  Receive Date: 20251029
  Receipt Date: 20251029
  Transmission Date: 20260118
  Serious: Yes (Hospitalization)
  Sender: ABBVIE
  Company Number: EU-ABBVIE-6472007

PATIENT
  Age: 78 Year
  Sex: Male

DRUGS (1)
  1. FOSCARBIDOPA\FOSLEVODOPA [Suspect]
     Active Substance: FOSCARBIDOPA\FOSLEVODOPA
     Indication: Parkinson^s disease
     Dosage: CRN:0.29ML/H, CR:0.35ML/H, CRH:0.37ML/H, ED:0.30ML
     Route: 058
     Dates: start: 20250902

REACTIONS (6)
  - Myocardial infarction [Recovering/Resolving]
  - Skin exfoliation [Unknown]
  - On and off phenomenon [Unknown]
  - Infusion site erythema [Unknown]
  - Hypokinesia [Unknown]
  - Infusion site induration [Recovering/Resolving]

NARRATIVE: CASE EVENT DATE: 20250101
